FAERS Safety Report 23043869 (Version 10)
Quarter: 2024Q2

REPORT INFORMATION
  Report Type: Spontaneous
  Country: CA (occurrence: CA)
  Receive Date: 20231009
  Receipt Date: 20240502
  Transmission Date: 20240716
  Serious: Yes (Hospitalization, Other)
  Sender: FDA-Public Use
  Company Number: CA-CELLTRION INC.-2023CA018503

PATIENT

DRUGS (6)
  1. INFLECTRA [Suspect]
     Active Substance: INFLIXIMAB-DYYB
     Indication: Crohn^s disease
     Dosage: 450 MG, WEEK 0, THEN EVERY 8 WEEKS
     Route: 042
     Dates: start: 20230915
  2. INFLECTRA [Suspect]
     Active Substance: INFLIXIMAB-DYYB
     Dosage: 225 MG, WEEK 2 (SUPPOSED TO RECEIVE 450 MG)
     Route: 042
     Dates: start: 20230930, end: 20230930
  3. INFLECTRA [Suspect]
     Active Substance: INFLIXIMAB-DYYB
     Dosage: 450 MG, EVERY 8 WEEK
     Route: 042
     Dates: start: 20231220
  4. INFLECTRA [Suspect]
     Active Substance: INFLIXIMAB-DYYB
     Dosage: UNK
  5. BENADRYL [Concomitant]
     Active Substance: DIPHENHYDRAMINE HYDROCHLORIDE
     Indication: Premedication
     Dosage: UNK
  6. PREDNISONE [Concomitant]
     Active Substance: PREDNISONE
     Dosage: 1 DF

REACTIONS (14)
  - Muscle spasms [Unknown]
  - Abnormal behaviour [Unknown]
  - Chest pain [Unknown]
  - Back pain [Recovered/Resolved]
  - Agitation [Unknown]
  - Nausea [Unknown]
  - Condition aggravated [Recovering/Resolving]
  - Treatment failure [Unknown]
  - Infusion related reaction [Not Recovered/Not Resolved]
  - Back disorder [Unknown]
  - Pruritus [Recovered/Resolved]
  - Drug hypersensitivity [Unknown]
  - Incorrect dose administered [Unknown]
  - Off label use [Unknown]

NARRATIVE: CASE EVENT DATE: 20230101
